FAERS Safety Report 4627634-3 (Version None)
Quarter: 2005Q2

REPORT INFORMATION
  Report Type: 
  Country: None (occurrence: None)
  Receive Date: 20050401
  Receipt Date: 20050322
  Transmission Date: 20051028
  Serious: Yes (Hospitalization)
  Sender: FDA-Public Use
  Company Number: 2005048846

PATIENT
  Sex: Female

DRUGS (1)
  1. ACCUPRIL [Suspect]
     Indication: ILL-DEFINED DISORDER

REACTIONS (1)
  - FEELING ABNORMAL [None]
